FAERS Safety Report 7261283-6 (Version None)
Quarter: 2011Q1

REPORT INFORMATION
  Report Type: 
  Country: None (occurrence: None)
  Receive Date: 20110130
  Receipt Date: 20100928
  Transmission Date: 20110831
  Serious: No
  Sender: FDA-Public Use
  Company Number: US-ABBOTT-10P-163-0674550-00

PATIENT
  Sex: Female

DRUGS (3)
  1. HUMIRA [Suspect]
  2. HUMIRA [Suspect]
     Indication: CROHN'S DISEASE
     Dates: start: 20100915
  3. HUMIRA [Suspect]

REACTIONS (2)
  - PAIN [None]
  - DRUG EFFECT DECREASED [None]
